FAERS Safety Report 6717691-2 (Version None)
Quarter: 2010Q2

REPORT INFORMATION
  Report Type: 
  Country: None (occurrence: None)
  Receive Date: 20100510
  Receipt Date: 20100429
  Transmission Date: 20101027
  Serious: Yes (Hospitalization)
  Sender: FDA-Public Use
  Company Number: US-JNJCH-2010010309

PATIENT
  Sex: Female
  Weight: 97.5 kg

DRUGS (5)
  1. BENADRYL [Suspect]
     Indication: LATEX ALLERGY
     Route: 042
     Dates: start: 20100101, end: 20100421
  2. TAGAMET [Suspect]
     Indication: LATEX ALLERGY
     Route: 042
     Dates: start: 20100101, end: 20100421
  3. SOLU-MEDROL [Suspect]
     Indication: LATEX ALLERGY
     Dosage: TEXT:UNKNOWN
     Route: 042
     Dates: start: 20100101, end: 20100421
  4. EPINEPHRINE [Suspect]
     Indication: LATEX ALLERGY
     Dosage: TEXT:UNKNOWN
     Route: 042
     Dates: start: 20100101, end: 20100421
  5. TOPAMAX [Concomitant]
     Indication: MIGRAINE
     Dosage: TEXT:UNSPECIFIED
     Route: 065

REACTIONS (4)
  - BLOOD POTASSIUM DECREASED [None]
  - DYSPNOEA [None]
  - RASH [None]
  - RESPIRATORY DISORDER [None]
